FAERS Safety Report 14290013 (Version 2)
Quarter: 2018Q2

REPORT INFORMATION
  Report Type: Spontaneous
  Country: US (occurrence: US)
  Receive Date: 20171215
  Receipt Date: 20180403
  Transmission Date: 20180711
  Serious: Yes (Hospitalization)
  Sender: FDA-Public Use
  Company Number: US-BRISTOL-MYERS SQUIBB COMPANY-BMS-2017-112227

PATIENT
  Sex: Female

DRUGS (2)
  1. OPDIVO [Suspect]
     Active Substance: NIVOLUMAB
     Indication: PRODUCT USED FOR UNKNOWN INDICATION
     Dosage: UNK
     Route: 042
     Dates: start: 20171107
  2. YERVOY [Suspect]
     Active Substance: IPILIMUMAB
     Indication: PRODUCT USED FOR UNKNOWN INDICATION
     Dosage: UNK
     Route: 042
     Dates: start: 20171107

REACTIONS (9)
  - Vomiting [Unknown]
  - Urticaria [Unknown]
  - Alopecia [Unknown]
  - Diarrhoea [Unknown]
  - Muscle spasms [Unknown]
  - Oral herpes [Unknown]
  - Hepatic enzyme increased [Unknown]
  - Nausea [Unknown]
  - Rash [Unknown]
